FAERS Safety Report 4796210-4 (Version None)
Quarter: 2005Q4

REPORT INFORMATION
  Report Type: 
  Country: None (occurrence: None)
  Receive Date: 20051006
  Receipt Date: 20051006
  Transmission Date: 20060501
  Serious: No
  Sender: FDA-Public Use
  Company Number: None

PATIENT
  Age: 72 Year
  Sex: Male

DRUGS (1)
  1. DOXYCYCLINE [Suspect]
     Indication: ROSACEA
     Dates: start: 20050910, end: 20050915

REACTIONS (1)
  - SKIN EXFOLIATION [None]
